FAERS Safety Report 5833760-3 (Version None)
Quarter: 2008Q3

REPORT INFORMATION
  Report Type: 
  Country: None (occurrence: None)
  Receive Date: 20080804
  Receipt Date: 20080804
  Transmission Date: 20090109
  Serious: Yes (Hospitalization)
  Sender: FDA-Public Use
  Company Number: None

PATIENT
  Sex: Female
  Weight: 58 kg

DRUGS (1)
  1. TAXOL [Suspect]
     Dosage: 205 MG
     Dates: end: 20080612

REACTIONS (4)
  - ANAEMIA [None]
  - DIARRHOEA [None]
  - OEDEMA [None]
  - VOMITING [None]
